FAERS Safety Report 10085945 (Version 1)
Quarter: 2014Q2

REPORT INFORMATION
  Report Type: Spontaneous
  Country: BR (occurrence: BR)
  Receive Date: 20140418
  Receipt Date: 20140418
  Transmission Date: 20141212
  Serious: Yes (Other)
  Sender: FDA-Public Use
  Company Number: PHHY2014BR044963

PATIENT
  Age: 64 Year
  Sex: Female
  Weight: 108 kg

DRUGS (10)
  1. LOTENSIN H [Suspect]
     Indication: HYPERTENSION
     Dosage: 1 DF (10MG BENA/12.5MG HCT), IN MORNING
     Route: 048
  2. LOTENSIN H [Suspect]
     Dosage: 1 DF (10MG BENA/12.5MG HCT), IN MORNING
     Route: 048
     Dates: end: 20140408
  3. METFORMIN [Suspect]
     Indication: TYPE 2 DIABETES MELLITUS
     Dosage: 800 MG, UNK
  4. DIAMICRON [Suspect]
     Indication: TYPE 2 DIABETES MELLITUS
     Dosage: 2 DF, DAILY (IN THE MORNING BREAKFAST)
  5. GLIFAGE XR [Concomitant]
     Indication: TYPE 2 DIABETES MELLITUS
     Dosage: 2 DF (500MG METF), AT LUNCH AND AT DINNER
     Route: 048
  6. JANUVIA [Concomitant]
     Indication: TYPE 2 DIABETES MELLITUS
     Dosage: 1 DF, IN THE MORNING
     Route: 048
  7. ROXFLAN [Concomitant]
     Indication: HYPERTENSION
     Dosage: 1 DF (5 MG AMLO), AT NIGHT
     Route: 048
  8. PURAN T4 [Concomitant]
     Indication: HYPOTHYROIDISM
     Dosage: 1 DF (112 UG LEVO), IN THE MORNING BREAKFAST
     Route: 048
  9. OMEPRAZOLE [Concomitant]
     Indication: GASTRITIS PROPHYLAXIS
     Dosage: 2 DF (20 MG OMEP), IN THE MORNING
  10. CENTRUM [Concomitant]
     Indication: NUTRITIONAL SUPPLEMENTATION
     Dosage: 1 DF, DAILY
     Route: 048

REACTIONS (16)
  - Osteoarthritis [Not Recovered/Not Resolved]
  - Chondropathy [Not Recovered/Not Resolved]
  - Peripheral swelling [Not Recovered/Not Resolved]
  - Hypokinesia [Not Recovered/Not Resolved]
  - Exostosis [Not Recovered/Not Resolved]
  - Calcinosis [Not Recovered/Not Resolved]
  - Pain in extremity [Not Recovered/Not Resolved]
  - Joint dislocation [Not Recovered/Not Resolved]
  - Calculus bladder [Not Recovered/Not Resolved]
  - Blood cholesterol increased [Recovered/Resolved]
  - Spinal pain [Not Recovered/Not Resolved]
  - Blood uric acid abnormal [Recovered/Resolved]
  - Gait disturbance [Not Recovered/Not Resolved]
  - Yellow skin [Not Recovered/Not Resolved]
  - Blood pressure increased [Recovered/Resolved]
  - Diarrhoea [Recovered/Resolved]
